FAERS Safety Report 18559579 (Version 8)
Quarter: 2023Q1

REPORT INFORMATION
  Report Type: Spontaneous
  Country: US (occurrence: US)
  Receive Date: 20201130
  Receipt Date: 20230209
  Transmission Date: 20230417
  Serious: Yes (Other)
  Sender: FDA-Public Use
  Company Number: US-PFIZER INC-2020468221

PATIENT
  Age: 78 Year
  Sex: Male

DRUGS (3)
  1. XELJANZ [Suspect]
     Active Substance: TOFACITINIB CITRATE
     Dosage: 10 MG
  2. XELJANZ [Suspect]
     Active Substance: TOFACITINIB CITRATE
     Dosage: 5 MG
  3. XELJANZ [Suspect]
     Active Substance: TOFACITINIB CITRATE
     Dosage: 10 MG, 2X/DAY
     Route: 048

REACTIONS (8)
  - Tuberculosis [Unknown]
  - Product dose omission issue [Unknown]
  - Intentional product misuse [Unknown]
  - Hypoacusis [Unknown]
  - Diarrhoea [Recovered/Resolved]
  - Daydreaming [Unknown]
  - Drug hypersensitivity [Unknown]
  - Arthritis [Unknown]
